FAERS Safety Report 19315257 (Version 4)
Quarter: 2021Q4

REPORT INFORMATION
  Report Type: Spontaneous
  Country: US (occurrence: US)
  Receive Date: 20210527
  Receipt Date: 20211013
  Transmission Date: 20220303
  Serious: No
  Sender: FDA-Public Use
  Company Number: US-SA-SAC20210525000802

PATIENT
  Age: 2 Year
  Sex: Male

DRUGS (2)
  1. ELOCTATE [Suspect]
     Active Substance: (1-743)-(1638-2332)-BLOOD-COAGULATION FACTOR VIII (SYNTHETIC HUMAN) FUSION PROTEIN WITH IMMUNOGLOBUL
     Indication: Factor VIII deficiency
     Dosage: 500 IU, PRN (EVERY 24 HOURS AS NEEDED)
     Route: 042
     Dates: start: 20200107
  2. ELOCTATE [Suspect]
     Active Substance: (1-743)-(1638-2332)-BLOOD-COAGULATION FACTOR VIII (SYNTHETIC HUMAN) FUSION PROTEIN WITH IMMUNOGLOBUL
     Indication: Factor VIII deficiency
     Dosage: 500 IU, PRN (EVERY 24 HOURS AS NEEDED)
     Route: 042
     Dates: start: 20200107

REACTIONS (7)
  - Traumatic haemorrhage [Unknown]
  - Injury [Unknown]
  - Head injury [Unknown]
  - Face injury [Unknown]
  - Fall [Unknown]
  - Contusion [Unknown]
  - Myalgia [Unknown]

NARRATIVE: CASE EVENT DATE: 20210519
